FAERS Safety Report 6969635-6 (Version None)
Quarter: 2010Q3

REPORT INFORMATION
  Report Type: 
  Country: None (occurrence: None)
  Receive Date: 20100908
  Receipt Date: 20100902
  Transmission Date: 20110219
  Serious: Yes (Hospitalization, Other)
  Sender: FDA-Public Use
  Company Number: US-ASTRAZENECA-2007UW18864

PATIENT
  Age: 732 Month
  Sex: Female
  Weight: 96.2 kg

DRUGS (43)
  1. SEROQUEL [Suspect]
     Indication: DEPRESSION
     Route: 048
     Dates: start: 20020701, end: 20030901
  2. SEROQUEL [Suspect]
     Indication: POST-TRAUMATIC STRESS DISORDER
     Route: 048
     Dates: start: 20020701, end: 20030901
  3. SEROQUEL [Suspect]
     Dosage: 100-400 MG
     Route: 048
     Dates: start: 20020917
  4. SEROQUEL [Suspect]
     Dosage: 100-400 MG
     Route: 048
     Dates: start: 20020917
  5. SEROQUEL [Suspect]
     Route: 048
     Dates: start: 20020917, end: 20030401
  6. SEROQUEL [Suspect]
     Route: 048
     Dates: start: 20020917, end: 20030401
  7. WELLBUTRIN [Suspect]
     Indication: DEPRESSION
     Dosage: 100-300 MG
     Route: 048
     Dates: end: 20051115
  8. ABILIFY [Concomitant]
     Route: 065
     Dates: start: 20040901, end: 20050201
  9. ZYPREXA [Concomitant]
     Indication: DEPRESSION
     Route: 065
     Dates: start: 19971001, end: 20020701
  10. ZYPREXA [Concomitant]
     Indication: POST-TRAUMATIC STRESS DISORDER
     Route: 065
     Dates: start: 19971001, end: 20020701
  11. ZYPREXA [Concomitant]
     Dosage: 2.5-5 MG
     Dates: start: 20010819, end: 20020801
  12. ZYPREXA [Concomitant]
     Dosage: 2.5-5 MG
     Dates: start: 20010819, end: 20020801
  13. HALDOL [Concomitant]
     Route: 065
  14. ZOLOFT [Concomitant]
     Route: 048
     Dates: start: 19990101
  15. ZOLOFT [Concomitant]
     Dates: start: 19990101
  16. NEURONTIN [Concomitant]
     Dosage: 100-500 MG
     Route: 048
  17. MOTRIN [Concomitant]
     Dosage: 400-1200 MG
     Route: 048
  18. GLYBURIDE [Concomitant]
     Indication: DIABETES MELLITUS
     Dosage: 2.5-12.5 MG
     Route: 048
     Dates: start: 20020905
  19. SYNTHROID [Concomitant]
     Indication: THYROID DISORDER
     Route: 048
  20. LIPITOR [Concomitant]
     Indication: HYPERLIPIDAEMIA
     Dosage: 10-20 MG
     Route: 048
  21. FLEXERIL [Concomitant]
     Route: 048
     Dates: end: 20070221
  22. TYLENOL (CAPLET) [Concomitant]
     Route: 065
  23. METOPROLOL TARTRATE [Concomitant]
     Route: 065
  24. TYLENOL W/ CODEINE NO. 3 [Concomitant]
     Indication: PAIN
     Dosage: 3-4 TIMES DAILY
     Route: 065
     Dates: end: 20070306
  25. DOLOBID [Concomitant]
     Route: 065
     Dates: end: 20070221
  26. ANTIVERT [Concomitant]
     Indication: VERTIGO
     Route: 048
     Dates: end: 20060420
  27. HYDROCHLOROTHIAZIDE [Concomitant]
     Indication: DIURETIC THERAPY
     Route: 048
  28. COLACE [Concomitant]
     Indication: LAXATIVE SUPPORTIVE CARE
     Dosage: 50-200 MG
     Route: 048
  29. PERCOCET [Concomitant]
     Indication: PAIN
     Dosage: 1 TO 2 TABLETS 4 TIMES A DAY
     Route: 048
  30. TRANXENE [Concomitant]
     Dosage: 7.5-22.5 MG
     Route: 048
  31. ZESTRIL [Concomitant]
     Indication: HYPERTENSION
     Dosage: 5-10 MG
     Route: 048
  32. ATENOLOL [Concomitant]
     Indication: HYPERTENSION
     Route: 048
  33. TAMOXIFEN CITRATE [Concomitant]
     Route: 065
     Dates: start: 20000101
  34. RALOXIFENE HCL [Concomitant]
     Route: 065
     Dates: start: 20000101
  35. TRAZODONE HCL [Concomitant]
     Route: 065
  36. VALIUM [Concomitant]
     Indication: ANXIETY
     Dosage: 4 TIMES
     Route: 065
  37. MYTUSSIN AC SYRUP [Concomitant]
     Route: 048
  38. AMBIEN [Concomitant]
     Indication: INSOMNIA
     Dosage: 5-10 MG
     Route: 048
  39. NOVOLIN R [Concomitant]
     Route: 065
  40. KLOR-CON [Concomitant]
     Indication: MINERAL SUPPLEMENTATION
     Route: 048
  41. LACTULOSE [Concomitant]
     Route: 048
  42. VISTARIL [Concomitant]
     Route: 030
  43. METFORMIN HCL [Concomitant]
     Route: 048

REACTIONS (22)
  - BLADDER PROLAPSE [None]
  - BONE PAIN [None]
  - CARPAL TUNNEL SYNDROME [None]
  - COLONIC POLYP [None]
  - DIABETIC FOOT [None]
  - DIABETIC RETINOPATHY [None]
  - DIVERTICULUM INTESTINAL [None]
  - FOOT FRACTURE [None]
  - GAIT DISTURBANCE [None]
  - HAEMORRHOIDS [None]
  - HEADACHE [None]
  - MUSCULOSKELETAL PAIN [None]
  - NEUROPATHY PERIPHERAL [None]
  - PELVIC PAIN [None]
  - PNEUMONIA [None]
  - RESTLESS LEGS SYNDROME [None]
  - STRESS URINARY INCONTINENCE [None]
  - THROMBOCYTOPENIA [None]
  - TREMOR [None]
  - TYPE 2 DIABETES MELLITUS [None]
  - VAGINAL HAEMORRHAGE [None]
  - VERTIGO [None]
